FAERS Safety Report 17425585 (Version 2)
Quarter: 2020Q1

REPORT INFORMATION
  Report Type: Report from Study
  Country: ES (occurrence: ES)
  Receive Date: 20200218
  Receipt Date: 20200224
  Transmission Date: 20200409
  Serious: Yes (Death, Hospitalization, Other)
  Sender: FDA-Public Use
  Company Number: ES-BRISTOL-MYERS SQUIBB COMPANY-BMS-2020-013157

PATIENT
  Age: 65 Year
  Sex: Male
  Weight: 74.7 kg

DRUGS (3)
  1. NIVOLUMAB [Suspect]
     Active Substance: NIVOLUMAB
     Indication: NEUROENDOCRINE CARCINOMA METASTATIC
     Dosage: 360 ABSENT, 1/3 WEEKS
     Route: 065
     Dates: start: 20200203
  2. ETOPOSIDE. [Suspect]
     Active Substance: ETOPOSIDE
     Indication: NEUROENDOCRINE CARCINOMA METASTATIC
     Dosage: 180 ABSENT, DAY 1, 2, 3/3 WEEKS
     Route: 065
     Dates: start: 20200203
  3. CARBOPLATIN. [Suspect]
     Active Substance: CARBOPLATIN
     Indication: NEUROENDOCRINE CARCINOMA METASTATIC
     Dosage: 655 ABSENT, DAY 1/3 WEEKS
     Route: 065
     Dates: start: 20200203

REACTIONS (3)
  - Oesophageal haemorrhage [Fatal]
  - Oesophagitis [Fatal]
  - Sepsis [Fatal]

NARRATIVE: CASE EVENT DATE: 20200212
